FAERS Safety Report 4748908-1 (Version None)
Quarter: 2005Q3

REPORT INFORMATION
  Report Type: 
  Country: None (occurrence: None)
  Receive Date: 20050817
  Receipt Date: 20050810
  Transmission Date: 20060218
  Serious: Yes (Other)
  Sender: FDA-Public Use
  Company Number: 2005113183

PATIENT
  Age: 67 Year
  Sex: Female
  Weight: 65 kg

DRUGS (4)
  1. LIPITOR [Suspect]
     Indication: ILL-DEFINED DISORDER
     Dosage: 10 MG (10 MG, 1 IN 1 D), ORAL
     Route: 048
     Dates: start: 20040801, end: 20050408
  2. NATRILIX (INDAPAMIDE) [Concomitant]
  3. SECTRAL [Concomitant]
  4. ECOTRIN (ACETYLSALICYLIC ACID) [Concomitant]

REACTIONS (3)
  - ARTHROPATHY [None]
  - MUSCLE ATROPHY [None]
  - MYOPATHY [None]
